FAERS Safety Report 22091647 (Version 1)
Quarter: 2023Q1

REPORT INFORMATION
  Report Type: Spontaneous
  Country: GB (occurrence: GB)
  Receive Date: 20230314
  Receipt Date: 20230314
  Transmission Date: 20230417
  Serious: Yes (Other)
  Sender: FDA-Public Use
  Company Number: GB-MHRA-MED-202303081359417150-CJLGR

PATIENT
  Sex: Female

DRUGS (3)
  1. SODIUM CHLORIDE [Suspect]
     Active Substance: SODIUM CHLORIDE
     Dosage: 40 MILLIMOLE, ONCE IN 4 HOUR, DOSAGE TEXT: 1 L OVER 4 HOURS, DOSAGE FORM: INJECTION
     Route: 065
     Dates: end: 20230307
  2. DEXTROSE [Suspect]
     Active Substance: DEXTROSE
     Dosage: 40 MILLIMOLE, ONCE IN 4 HOUR, DOSAGE TEXT: 1 L OVER 4 HOUR, DOSAGE FORM: INJECTION
     Route: 065
     Dates: end: 20230307
  3. POTASSIUM CHLORIDE [Suspect]
     Active Substance: POTASSIUM CHLORIDE
     Dosage: 40 MILLIMOLE, ONCE IN 4 HOUR, DOSAGE TEXT: 1 L OVER 4 HOURS
     Route: 065
     Dates: end: 20230307

REACTIONS (3)
  - Product prescribing error [Unknown]
  - Wrong drug [Recovered/Resolved]
  - Blood glucose increased [Recovering/Resolving]

NARRATIVE: CASE EVENT DATE: 20230307
